FAERS Safety Report 11339743 (Version 1)
Quarter: 2015Q3

REPORT INFORMATION
  Report Type: Spontaneous
  Country: US (occurrence: US)
  Receive Date: 20150805
  Receipt Date: 20150805
  Transmission Date: 20151125
  Serious: No
  Sender: FDA-Public Use
  Company Number: US-B.I. PHARMACEUTICALS,INC./RIDGEFIELD-2015-BI-40177BP

PATIENT
  Age: 63 Year
  Sex: Female
  Weight: 68 kg

DRUGS (6)
  1. SPIRIVA [Suspect]
     Active Substance: TIOTROPIUM BROMIDE MONOHYDRATE
     Indication: CHRONIC OBSTRUCTIVE PULMONARY DISEASE
     Dosage: 18 MCG
     Route: 055
     Dates: start: 2010, end: 2013
  2. LEVOTHYROXINE. [Concomitant]
     Active Substance: LEVOTHYROXINE
     Indication: THYROIDECTOMY
     Dosage: 0.5 MG
     Route: 048
  3. CALCIUM [Concomitant]
     Active Substance: CALCIUM
     Indication: BONE DENSITY DECREASED
     Route: 048
  4. PROLIA [Concomitant]
     Active Substance: DENOSUMAB
     Indication: BONE DENSITY DECREASED
     Dosage: FORMULATION: INJECTION
     Route: 058
  5. MELOXICAM. [Concomitant]
     Active Substance: MELOXICAM
     Indication: ARTHRITIS
     Dosage: 7.5 MG
     Route: 048
     Dates: start: 2011
  6. MAGNESIUM [Concomitant]
     Active Substance: MAGNESIUM
     Indication: BONE DENSITY DECREASED
     Route: 048

REACTIONS (2)
  - Asthma [Recovered/Resolved]
  - Asthma [Recovered/Resolved]

NARRATIVE: CASE EVENT DATE: 201201
